FAERS Safety Report 17164083 (Version 3)
Quarter: 2020Q1

REPORT INFORMATION
  Report Type: Report from Study
  Country: IT (occurrence: IT)
  Receive Date: 20191217
  Receipt Date: 20200219
  Transmission Date: 20200409
  Serious: Yes (Hospitalization)
  Sender: FDA-Public Use
  Company Number: IT-MYLANLABS-2019M1123224

PATIENT
  Age: 50 Year
  Sex: Female
  Weight: 80 kg

DRUGS (2)
  1. FLUVOXAMINE MALEATE. [Interacting]
     Active Substance: FLUVOXAMINE MALEATE
     Indication: MENTAL DISORDER
     Dosage: 50 MILLIGRAM, QD
     Route: 048
     Dates: start: 20190927, end: 20191003
  2. CLOZAPINE. [Suspect]
     Active Substance: CLOZAPINE
     Indication: MENTAL DISORDER
     Dosage: 200 MILLIGRAM, QD
     Route: 048
     Dates: start: 20151003, end: 20191003

REACTIONS (3)
  - Labelled drug-drug interaction medication error [Unknown]
  - Anxiety [Unknown]
  - Drug level increased [Unknown]

NARRATIVE: CASE EVENT DATE: 20191003
